FAERS Safety Report 7535279-0 (Version None)
Quarter: 2011Q2

REPORT INFORMATION
  Report Type: 
  Country: None (occurrence: None)
  Receive Date: 20110609
  Receipt Date: 20080123
  Transmission Date: 20111010
  Serious: Yes (Hospitalization, Other)
  Sender: FDA-Public Use
  Company Number: PHHY2007CA00969

PATIENT
  Sex: Male
  Weight: 97.505 kg

DRUGS (3)
  1. KEMADRIN [Concomitant]
     Dosage: 5 MG, BID
  2. VALPROATE SODIUM [Concomitant]
     Dosage: 500 MG BID + 750 MG EVENING
  3. CLOZAPINE [Suspect]
     Indication: SCHIZOPHRENIA, DISORGANISED TYPE
     Dosage: 100 MG MORN, 50 MG SUPPER, 200 MG EVENING
     Route: 048
     Dates: start: 19980101

REACTIONS (5)
  - EPIDIDYMITIS [None]
  - DRUG LEVEL INCREASED [None]
  - PROSTATE INFECTION [None]
  - URINARY TRACT INFECTION [None]
  - FALL [None]
